FAERS Safety Report 12004725 (Version 2)
Quarter: 2016Q1

REPORT INFORMATION
  Report Type: Spontaneous
  Country: DE (occurrence: DE)
  Receive Date: 20160204
  Receipt Date: 20160217
  Transmission Date: 20160526
  Serious: Yes (Hospitalization)
  Sender: FDA-Public Use
  Company Number: DE-SA-2016SA015570

PATIENT
  Age: 48 Year
  Sex: Female
  Weight: 132 kg

DRUGS (10)
  1. VALSARTAN. [Concomitant]
     Active Substance: VALSARTAN
     Indication: HYPERTENSION
     Route: 048
     Dates: start: 20160121
  2. TOREM [Concomitant]
     Active Substance: TORSEMIDE
     Indication: HYPERTENSION
     Route: 048
  3. AUBAGIO [Suspect]
     Active Substance: TERIFLUNOMIDE
     Indication: MULTIPLE SCLEROSIS
     Route: 048
     Dates: start: 201411, end: 201501
  4. FERRO ^SANOL^ [Concomitant]
     Route: 048
     Dates: start: 20160120
  5. AUBAGIO [Suspect]
     Active Substance: TERIFLUNOMIDE
     Indication: MULTIPLE SCLEROSIS
     Route: 048
     Dates: start: 201507, end: 201509
  6. AUBAGIO [Suspect]
     Active Substance: TERIFLUNOMIDE
     Indication: MULTIPLE SCLEROSIS
     Route: 048
     Dates: start: 201512, end: 20160112
  7. TECFIDERA [Concomitant]
     Active Substance: DIMETHYL FUMARATE
     Route: 065
     Dates: start: 20160121
  8. THIOCTACID [Concomitant]
     Active Substance: THIOCTIC ACID
     Route: 048
     Dates: start: 20160120, end: 20160121
  9. LYRICA [Concomitant]
     Active Substance: PREGABALIN
     Indication: DIABETIC NEUROPATHY
     Route: 048
  10. THIOCTACID [Concomitant]
     Active Substance: THIOCTIC ACID
     Route: 048
     Dates: start: 20160122

REACTIONS (10)
  - Pollakiuria [Unknown]
  - Restlessness [Recovering/Resolving]
  - Myocardial infarction [Recovering/Resolving]
  - Dysuria [Unknown]
  - Menorrhagia [Unknown]
  - Pain [Unknown]
  - Pallor [Unknown]
  - Polyuria [Unknown]
  - Pruritus [Unknown]
  - Chest pain [Recovering/Resolving]

NARRATIVE: CASE EVENT DATE: 20160123
